FAERS Safety Report 21312162 (Version 1)
Quarter: 2022Q3

REPORT INFORMATION
  Report Type: Spontaneous
  Country: US (occurrence: None)
  Receive Date: 20220909
  Receipt Date: 20220909
  Transmission Date: 20221027
  Serious: No
  Sender: FDA-Public Use
  Company Number: US-ARIS GLOBAL-202204-0742

PATIENT
  Age: 75 Year
  Sex: Female

DRUGS (15)
  1. OXERVATE [Suspect]
     Active Substance: CENEGERMIN-BKBJ
     Indication: Neurotrophic keratopathy
     Route: 047
     Dates: start: 20220421
  2. PROLIA [Concomitant]
     Active Substance: DENOSUMAB
     Dosage: 60 MG/ML SYRINGE
  3. CALCIUM [Concomitant]
     Active Substance: CALCIUM
     Dosage: 500(1250)
  4. VITAMIN C [Concomitant]
     Active Substance: ASCORBIC ACID
  5. RETAINE MGD [Concomitant]
     Active Substance: LIGHT MINERAL OIL\MINERAL OIL
     Dosage: 0.5 %-0.5%
  6. PREDNISOLONE-NEPAFENAC [Concomitant]
  7. VITAMIN D3 [Concomitant]
     Active Substance: CHOLECALCIFEROL
     Dosage: 2000 (IU) 50 MCG
  8. ASPIRIN [Concomitant]
     Active Substance: ASPIRIN
  9. COENZYME Q-10 [Concomitant]
  10. MAGNESIUM [Concomitant]
     Active Substance: MAGNESIUM
  11. METHOTREXATE [Concomitant]
     Active Substance: METHOTREXATE
     Dosage: VIAL
  12. ORENCIA [Concomitant]
     Active Substance: ABATACEPT
     Dosage: 125 MG/ML SYRINGE
  13. LIOTHYRONINE SODIUM [Concomitant]
     Active Substance: LIOTHYRONINE SODIUM
  14. SERTRALINE HYDROCHLORIDE [Concomitant]
     Active Substance: SERTRALINE HYDROCHLORIDE
  15. SIMVASTATIN [Concomitant]
     Active Substance: SIMVASTATIN

REACTIONS (4)
  - Eye pain [Unknown]
  - Ocular hyperaemia [Unknown]
  - Eye swelling [Unknown]
  - Hordeolum [Unknown]

NARRATIVE: CASE EVENT DATE: 20220423
